FAERS Safety Report 8392649-9 (Version None)
Quarter: 2012Q2

REPORT INFORMATION
  Report Type: 
  Country: None (occurrence: None)
  Receive Date: 20120529
  Receipt Date: 20120518
  Transmission Date: 20120825
  Serious: Yes (Other)
  Sender: FDA-Public Use
  Company Number: US-JNJFOC-20120413030

PATIENT
  Sex: Female
  Weight: 47.63 kg

DRUGS (8)
  1. ALBUTEROL [Concomitant]
     Route: 065
  2. REMICADE [Suspect]
     Indication: INFLAMMATORY BOWEL DISEASE
     Dosage: 4 INFUSION
     Route: 042
     Dates: start: 20120425
  3. REMICADE [Suspect]
     Indication: CROHN'S DISEASE
     Route: 042
     Dates: start: 20111128
  4. ENTOCORT EC [Concomitant]
     Indication: CROHN'S DISEASE
     Route: 065
     Dates: start: 20111027, end: 20120301
  5. REMICADE [Suspect]
     Dosage: 4 INFUSION
     Route: 042
     Dates: start: 20120425
  6. MULTIVITAMINS WITH IRON [Concomitant]
     Indication: ANAEMIA
     Route: 065
     Dates: start: 20111006
  7. REMICADE [Suspect]
     Route: 042
     Dates: start: 20111128
  8. SYNTHROID [Concomitant]
     Indication: HYPOTHYROIDISM
     Route: 065
     Dates: start: 20070101

REACTIONS (4)
  - WHEEZING [None]
  - INFUSION RELATED REACTION [None]
  - ARTHRALGIA [None]
  - DYSPNOEA [None]
